FAERS Safety Report 8630296 (Version 4)
Quarter: 2012Q4

REPORT INFORMATION
  Report Type: 
  Country: DK (occurrence: DK)
  Receive Date: 20120622
  Receipt Date: 20121203
  Transmission Date: 20130627
  Serious: Yes (Hospitalization, Other)
  Sender: FDA-Public Use
  Company Number: DK-ROCHE-1078373

PATIENT
  Sex: Male

DRUGS (5)
  1. LARIAM [Suspect]
     Indication: MALARIA PROPHYLAXIS
     Route: 065
  2. TRILEPTAL [Concomitant]
     Dosage: for one week
     Route: 065
  3. TRILEPTAL [Concomitant]
     Dosage: 150mg+300 mg for another one week
     Route: 065
  4. TRILEPTAL [Concomitant]
     Dosage: 300 mg+ 300 mg for next week
     Route: 065
  5. LAMOTRIGINE [Concomitant]

REACTIONS (9)
  - Partial seizures [Recovered/Resolved]
  - Convulsion [Unknown]
  - Epilepsy [Not Recovered/Not Resolved]
  - Depression [Not Recovered/Not Resolved]
  - Ill-defined disorder [Unknown]
  - Depression [Not Recovered/Not Resolved]
  - Learning disability [Not Recovered/Not Resolved]
  - Malaise [Unknown]
  - Memory impairment [Not Recovered/Not Resolved]
